FAERS Safety Report 15621897 (Version 1)
Quarter: 2018Q4

REPORT INFORMATION
  Report Type: Spontaneous
  Country: US (occurrence: US)
  Receive Date: 20181113
  Receipt Date: 20181113
  Transmission Date: 20190205
  Serious: No
  Sender: FDA-Public Use
  Company Number: None

PATIENT
  Age: 82 Year
  Sex: Female
  Weight: 67.5 kg

DRUGS (7)
  1. CYANOCOBALAMIN. [Concomitant]
     Active Substance: CYANOCOBALAMIN
  2. MAGNESIUM [Concomitant]
     Active Substance: MAGNESIUM
  3. IBRANCE [Suspect]
     Active Substance: PALBOCICLIB
     Route: 048
     Dates: start: 20180604, end: 20181113
  4. RANEXA [Concomitant]
     Active Substance: RANOLAZINE
  5. LABETALOL [Concomitant]
     Active Substance: LABETALOL\LABETALOL HYDROCHLORIDE
  6. MULTIVITAMIN [Concomitant]
     Active Substance: VITAMINS
  7. NITROGLYCERIN. [Concomitant]
     Active Substance: NITROGLYCERIN

REACTIONS (1)
  - Full blood count decreased [None]
